FAERS Safety Report 19212541 (Version 5)
Quarter: 2021Q2

REPORT INFORMATION
  Report Type: Spontaneous
  Country: GB (occurrence: GB)
  Receive Date: 20210504
  Receipt Date: 20210525
  Transmission Date: 20210717
  Serious: Yes (Hospitalization, Other)
  Sender: FDA-Public Use
  Company Number: GB-009507513-2104GBR008704

PATIENT
  Age: 32 Year
  Sex: Male

DRUGS (3)
  1. TENOFOVIR DISOPROXIL FUMARATE. [Suspect]
     Active Substance: TENOFOVIR DISOPROXIL FUMARATE
     Indication: HIV INFECTION
     Dosage: UNK
     Dates: start: 202103
  2. EMTRICITABINE [Suspect]
     Active Substance: EMTRICITABINE
     Indication: HIV INFECTION
     Dosage: UNK
     Dates: start: 202103
  3. DORAVIRINE [Suspect]
     Active Substance: DORAVIRINE
     Indication: HIV INFECTION
     Dosage: UNK
     Route: 048
     Dates: start: 202103

REACTIONS (4)
  - Abnormal behaviour [Unknown]
  - Drug abuse [Unknown]
  - Aggression [Unknown]
  - Psychotic disorder [Unknown]

NARRATIVE: CASE EVENT DATE: 202104
